FAERS Safety Report 5036510-6 (Version None)
Quarter: 2006Q2

REPORT INFORMATION
  Report Type: 
  Country: None (occurrence: None)
  Receive Date: 20060613
  Receipt Date: 20051115
  Transmission Date: 20061013
  Serious: Yes (Other)
  Sender: FDA-Public Use
  Company Number: US-JNJFOC-20050906877

PATIENT
  Age: 29 Year
  Sex: Male
  Weight: 96.1626 kg

DRUGS (5)
  1. HALDOL [Suspect]
     Indication: SCHIZOPHRENIA, PARANOID TYPE
     Dosage: 15 MG, 2 IN 1 DAY, ORAL
     Route: 048
     Dates: start: 20050601
  2. CLOZAPINE [Suspect]
     Indication: SCHIZOPHRENIA, PARANOID TYPE
     Dosage: 300 MG, 2 IN 1 DAY
     Dates: start: 20041101, end: 20050817
  3. LAMICTAL [Concomitant]
  4. DEPAKOTE ER [Concomitant]
  5. BENZTROPINE MESYLATE [Concomitant]

REACTIONS (1)
  - GRAND MAL CONVULSION [None]
